FAERS Safety Report 17483875 (Version 2)
Quarter: 2020Q2

REPORT INFORMATION
  Report Type: Report from Study
  Country: None (occurrence: US)
  Receive Date: 20200302
  Receipt Date: 20200514
  Transmission Date: 20200713
  Serious: Yes (Hospitalization, Other)
  Sender: FDA-Public Use
  Company Number: US-ABBVIE-20K-163-3296002-00

PATIENT
  Sex: Female
  Weight: 63.56 kg

DRUGS (2)
  1. IMURAN [Concomitant]
     Active Substance: AZATHIOPRINE
     Indication: RHEUMATOID ARTHRITIS
  2. HUMIRA [Suspect]
     Active Substance: ADALIMUMAB
     Indication: RHEUMATOID ARTHRITIS
     Route: 058

REACTIONS (6)
  - Syncope [Recovered/Resolved]
  - Blood count abnormal [Not Recovered/Not Resolved]
  - Localised infection [Not Recovered/Not Resolved]
  - Dizziness [Unknown]
  - Hypoacusis [Unknown]
  - Loss of consciousness [Unknown]
